FAERS Safety Report 9813001 (Version 1)
Quarter: 2014Q1

REPORT INFORMATION
  Report Type: Spontaneous
  Country: US (occurrence: US)
  Receive Date: 20140113
  Receipt Date: 20140113
  Transmission Date: 20141002
  Serious: Yes (Death)
  Sender: FDA-Public Use
  Company Number: US-PFIZER INC-2014006357

PATIENT
  Age: 54 Year
  Sex: Female

DRUGS (6)
  1. ATENOLOL [Suspect]
     Dosage: UNK
     Route: 048
  2. GLIPIZIDE [Suspect]
     Dosage: UNK
     Route: 048
  3. GEMFIBROZIL [Suspect]
     Dosage: UNK
     Route: 048
  4. FENTANYL [Suspect]
     Dosage: UNK
     Route: 048
  5. METFORMIN [Suspect]
     Dosage: UNK
     Route: 048
  6. OLANZAPINE/FLUOXETINE HYDROCHLORIDE [Suspect]
     Dosage: UNK
     Route: 048

REACTIONS (1)
  - Completed suicide [Fatal]
